FAERS Safety Report 8212194-0 (Version None)
Quarter: 2012Q1

REPORT INFORMATION
  Report Type: 
  Country: None (occurrence: None)
  Receive Date: 20120315
  Receipt Date: 20120306
  Transmission Date: 20120608
  Serious: Yes (Hospitalization)
  Sender: FDA-Public Use
  Company Number: US-ACTELION-A-NJ2012-62250

PATIENT

DRUGS (2)
  1. TRACLEER [Suspect]
     Indication: PULMONARY ARTERIAL HYPERTENSION
     Dosage: UNK
     Route: 048
     Dates: start: 20060807
  2. COUMADIN [Concomitant]

REACTIONS (4)
  - FALL [None]
  - HAEMORRHAGE [None]
  - NERVE COMPRESSION [None]
  - HAEMATOMA [None]
